FAERS Safety Report 24052681 (Version 1)
Quarter: 2024Q3

REPORT INFORMATION
  Report Type: Spontaneous
  Country: ES (occurrence: ES)
  Receive Date: 20240705
  Receipt Date: 20240705
  Transmission Date: 20241017
  Serious: Yes (Life-Threatening, Hospitalization)
  Sender: Haleon PLC
  Company Number: None

PATIENT
  Age: 37 Year
  Sex: Male

DRUGS (3)
  1. ACETAMINOPHEN [Interacting]
     Active Substance: ACETAMINOPHEN
     Indication: Intentional overdose
     Dosage: TIME INTERVAL: TOTAL
     Route: 048
     Dates: start: 20240523, end: 20240523
  2. IBUPROFEN [Interacting]
     Active Substance: IBUPROFEN
     Indication: Intentional overdose
     Route: 048
     Dates: start: 20240523, end: 20240523
  3. LORAZEPAM [Interacting]
     Active Substance: LORAZEPAM
     Indication: Intentional overdose
     Route: 048
     Dates: start: 20240523, end: 20240523

REACTIONS (2)
  - Acute hepatic failure [Recovered/Resolved with Sequelae]
  - Intentional overdose [Recovered/Resolved with Sequelae]

NARRATIVE: CASE EVENT DATE: 20240524
